FAERS Safety Report 6678826-3 (Version None)
Quarter: 2010Q2

REPORT INFORMATION
  Report Type: 
  Country: None (occurrence: None)
  Receive Date: 20100412
  Receipt Date: 20100412
  Transmission Date: 20101027
  Serious: Yes (Hospitalization)
  Sender: FDA-Public Use
  Company Number: None

PATIENT
  Sex: Male
  Weight: 94 kg

DRUGS (9)
  1. ABRAXANE [Suspect]
     Indication: PANCREATIC CARCINOMA
     Dosage: 209 MG D1, D8, D15/CYCLE 042
     Dates: start: 20100312, end: 20100326
  2. VANDETANIB [Suspect]
     Indication: PANCREATIC CARCINOMA
     Dosage: 300 MG QD X 28 DAYS 047
     Dates: start: 20100312, end: 20100401
  3. DARVOCET [Concomitant]
  4. AMBIEN [Concomitant]
  5. DILAUDID [Concomitant]
  6. FENTANYL-75 [Concomitant]
  7. TRIAMCINOLONE [Concomitant]
  8. LEVAQUIN [Concomitant]
  9. SOLU-MEDROL [Concomitant]

REACTIONS (5)
  - HALLUCINATION [None]
  - INFECTION [None]
  - RASH [None]
  - SCAB [None]
  - SECRETION DISCHARGE [None]
